FAERS Safety Report 4603277-2 (Version None)
Quarter: 2005Q1

REPORT INFORMATION
  Report Type: 
  Country: None (occurrence: None)
  Receive Date: 20050308
  Receipt Date: 20050224
  Transmission Date: 20050727
  Serious: Yes (Death, Hospitalization)
  Sender: FDA-Public Use
  Company Number: 2005035915

PATIENT
  Age: 70 Year
  Sex: Female
  Weight: 75 kg

DRUGS (7)
  1. DOXORUBICIN HYDROCHLORIDE [Suspect]
     Indication: BREAST CANCER
     Dosage: 85 MG (85 MG, EVERY THREE WEEKS), INTRA-ARTERIAL
     Route: 013
     Dates: start: 20041104, end: 20041125
  2. PEMETREXED (PEMETREXED) [Suspect]
     Indication: BREAST CANCER
     Dosage: 850 MG (850, EVERY THREE WEEKS), INTRAVENOUS
     Route: 042
     Dates: start: 20041104, end: 20041125
  3. FOLIC ACID [Concomitant]
  4. CYANOCOBALAMIN [Concomitant]
  5. FENTANYL (FENTANYL) [Concomitant]
  6. GLIMEPIRIDE (GLIMEPIRIDE0 [Concomitant]
  7. ENALAPRIL MALEATE [Concomitant]

REACTIONS (9)
  - DIARRHOEA [None]
  - DISEASE PROGRESSION [None]
  - DRUG TOXICITY [None]
  - DYSPNOEA [None]
  - GENERAL PHYSICAL HEALTH DETERIORATION [None]
  - GRANULOCYTE COUNT INCREASED [None]
  - HYPOKALAEMIA [None]
  - PERFORMANCE STATUS DECREASED [None]
  - PULMONARY THROMBOSIS [None]
